FAERS Safety Report 6084354-9 (Version None)
Quarter: 2009Q1

REPORT INFORMATION
  Report Type: 
  Country: None (occurrence: None)
  Receive Date: 20090217
  Receipt Date: 20090206
  Transmission Date: 20090719
  Serious: Yes (Hospitalization, Disabling)
  Sender: FDA-Public Use
  Company Number: 2009AL000811

PATIENT
  Age: 86 Year
  Sex: Female

DRUGS (10)
  1. TRAMADOL HYDROCHLORIDE [Suspect]
     Indication: PAIN
     Dosage: 100 MG; PO
     Route: 048
  2. PERHEXILINE [Concomitant]
  3. ASPIRIN [Concomitant]
  4. CLOPIDOGREL [Concomitant]
  5. SIMVASTATIN [Concomitant]
  6. LANSOPRAZOLE [Concomitant]
  7. BISOPROLOL [Concomitant]
  8. ACETAMINOPHEN W/ CODEINE [Concomitant]
  9. VALSARTAN [Concomitant]
  10. ISOSORBIDE MONONITRATE [Concomitant]

REACTIONS (3)
  - DYSKINESIA [None]
  - MOBILITY DECREASED [None]
  - SPEECH DISORDER [None]
